FAERS Safety Report 9499551 (Version 4)
Quarter: 2013Q4

REPORT INFORMATION
  Report Type: Spontaneous
  Country: IT (occurrence: IT)
  Receive Date: 20130905
  Receipt Date: 20131031
  Transmission Date: 20140711
  Serious: Yes (Hospitalization)
  Sender: FDA-Public Use
  Company Number: IT-BRISTOL-MYERS SQUIBB COMPANY-19241371

PATIENT
  Age: 89 Year
  Sex: Female

DRUGS (9)
  1. COUMADIN TABS 5 MG [Suspect]
     Indication: ATRIAL FIBRILLATION
     Dosage: 1DF: 1UNIT
     Route: 048
     Dates: start: 20100101, end: 20130815
  2. FUROSEMIDE [Concomitant]
  3. POTASSIUM CANRENOATE [Concomitant]
  4. ALLOPURINOL [Concomitant]
  5. BISOPROLOL HEMIFUMARATE [Concomitant]
  6. ZOLPIDEM TARTRATE [Concomitant]
  7. ATORVASTATIN CALCIUM [Concomitant]
  8. LANOXIN [Concomitant]
     Dosage: 1DF: 1UNIT?0.0625 MG TABS
  9. EUTIROX [Concomitant]
     Dosage: 1DF: 1UNIT?75 MCG TABS

REACTIONS (3)
  - Cerebral haematoma [Recovering/Resolving]
  - Monoparesis [Recovering/Resolving]
  - VIIth nerve paralysis [Recovering/Resolving]
